FAERS Safety Report 11717405 (Version 2)
Quarter: 2015Q4

REPORT INFORMATION
  Report Type: Report from Study
  Country: US (occurrence: US)
  Receive Date: 20151110
  Receipt Date: 20151122
  Transmission Date: 20160304
  Serious: Yes (Hospitalization)
  Sender: FDA-Public Use
  Company Number: US-AMGEN-USACT2015117407

PATIENT
  Age: 54 Year
  Sex: Female
  Weight: 140.5 kg

DRUGS (3)
  1. CARFILZOMIB [Suspect]
     Active Substance: CARFILZOMIB
     Indication: PLASMA CELL MYELOMA
     Dosage: 320 MG, PER CHEMO REGIM
     Route: 065
     Dates: start: 20150413
  2. LENALIDOMIDE [Suspect]
     Active Substance: LENALIDOMIDE
     Indication: PLASMA CELL MYELOMA
     Dosage: 150 MG, PER CHEMO REGIM
     Route: 065
     Dates: start: 20151019, end: 20151102
  3. DEXAMETHASONE. [Suspect]
     Active Substance: DEXAMETHASONE
     Indication: PLASMA CELL MYELOMA
     Dosage: 60 UNK, PER CHEMO REGIM
     Route: 065
     Dates: start: 20151019, end: 20151102

REACTIONS (2)
  - Skin infection [Not Recovered/Not Resolved]
  - Anaemia [Not Recovered/Not Resolved]

NARRATIVE: CASE EVENT DATE: 20151102
